FAERS Safety Report 14694991 (Version 1)
Quarter: 2018Q1

REPORT INFORMATION
  Report Type: Spontaneous
  Country: US (occurrence: US)
  Receive Date: 20180327
  Receipt Date: 20180327
  Transmission Date: 20180509
  Serious: Yes (Hospitalization)
  Sender: FDA-Public Use
  Company Number: None

PATIENT
  Age: 16 Year
  Sex: Female

DRUGS (8)
  1. LEVOCETIRIZINE [Concomitant]
     Active Substance: LEVOCETIRIZINE
  2. SPIRIVA [Concomitant]
     Active Substance: TIOTROPIUM BROMIDE MONOHYDRATE
  3. MEPHYTON [Concomitant]
     Active Substance: PHYTONADIONE
  4. MEGACE [Concomitant]
     Active Substance: MEGESTROL ACETATE
  5. KITABIS PAK [Concomitant]
     Active Substance: TOBRAMYCIN
  6. MVW MULTIVITAMIN CAPS COMPLETE FORMULATION [Concomitant]
     Active Substance: VITAMINS
  7. LEXAPRO [Concomitant]
     Active Substance: ESCITALOPRAM OXALATE
  8. ORKAMBI [Suspect]
     Active Substance: IVACAFTOR\LUMACAFTOR
     Indication: CYSTIC FIBROSIS
     Dosage: ?          QUANTITY:AN^ I? U!?WY):;?
     Route: 048
     Dates: start: 20170330, end: 201803

REACTIONS (1)
  - Bronchospasm [None]

NARRATIVE: CASE EVENT DATE: 201803
